APPROVED DRUG PRODUCT: DAPTOMYCIN
Active Ingredient: DAPTOMYCIN
Strength: 500MG/VIAL
Dosage Form/Route: POWDER;INTRAVENOUS
Application: A202857 | Product #001
Applicant: HOSPIRA INC
Approved: Sep 12, 2014 | RLD: No | RS: No | Type: DISCN